FAERS Safety Report 4729928-X (Version None)
Quarter: 2005Q3

REPORT INFORMATION
  Report Type: 
  Country: None (occurrence: None)
  Receive Date: 20050728
  Receipt Date: 20050725
  Transmission Date: 20060218
  Serious: Yes (Life-Threatening, Hospitalization, Other)
  Sender: FDA-Public Use
  Company Number: AU-2004-027955

PATIENT
  Age: 76 Year
  Sex: Female

DRUGS (13)
  1. ULTRAVIST 370 [Suspect]
     Indication: ARTERIOGRAM CORONARY
     Dosage: 75 MI, INTRA-ARTERIAL
     Route: 013
     Dates: start: 20040414, end: 20040414
  2. ANGIOMAX [Suspect]
     Indication: ACUTE CORONARY SYNDROME
     Dosage: 7.6 MG, IV BOLUS; 0.25 MG/KG, 1XH, IV DRIP
     Route: 040
     Dates: start: 20040413, end: 20040413
  3. ANGIOMAX [Suspect]
     Indication: ACUTE CORONARY SYNDROME
     Dosage: 7.6 MG, IV BOLUS; 0.25 MG/KG, 1XH, IV DRIP
     Route: 040
     Dates: start: 20040413, end: 20040414
  4. ATENOLOL [Suspect]
     Dosage: 25 MG, ORAL
     Route: 048
     Dates: start: 20040503, end: 20040503
  5. ASPIRIN [Concomitant]
  6. ATORVASTATIN CALCIUM [Concomitant]
  7. SLOW-K [Concomitant]
  8. TEMAZEPAM [Concomitant]
  9. CHLORVESCENT [Concomitant]
  10. DIGOXIN [Concomitant]
  11. ALBUTEROL SULFATE HFA [Concomitant]
  12. HEPARIN [Concomitant]
  13. HEPARIN [Concomitant]

REACTIONS (22)
  - AGITATION [None]
  - ANXIETY [None]
  - ATRIAL FIBRILLATION [None]
  - BLOOD CHLORIDE DECREASED [None]
  - BRADYCARDIA [None]
  - CARDIAC DISORDER [None]
  - CONTRAST MEDIA REACTION [None]
  - DYSPNOEA [None]
  - HEART RATE INCREASED [None]
  - HYPOTENSION [None]
  - INJURY [None]
  - LEFT VENTRICULAR FAILURE [None]
  - LOBAR PNEUMONIA [None]
  - LUNG CREPITATION [None]
  - MYOCARDIAL INFARCTION [None]
  - NEPHROPATHY TOXIC [None]
  - OLIGURIA [None]
  - OXYGEN SATURATION DECREASED [None]
  - PULMONARY OEDEMA [None]
  - RENAL FAILURE ACUTE [None]
  - TRICUSPID VALVE INCOMPETENCE [None]
  - ULTRASOUND KIDNEY ABNORMAL [None]
